FAERS Safety Report 4626601-3 (Version None)
Quarter: 2005Q1

REPORT INFORMATION
  Report Type: 
  Country: None (occurrence: None)
  Receive Date: 20050330
  Receipt Date: 20050309
  Transmission Date: 20050727
  Serious: Yes (Hospitalization, Other)
  Sender: FDA-Public Use
  Company Number: US_0407104141

PATIENT
  Age: 47 Year
  Sex: Male
  Weight: 136 kg

DRUGS (9)
  1. ZYPREXA [Suspect]
     Dosage: 10 MG/2 DAY
     Dates: start: 19980101, end: 20040602
  2. DEPAKOTE [Concomitant]
  3. ZOLOFT [Concomitant]
  4. PRAVACHOL [Concomitant]
  5. DIAZIDE (GLICLAZIDE) [Concomitant]
  6. ZYBAN [Concomitant]
  7. NICOTINE DERMA PATCH (NICOTINE RESIN) [Concomitant]
  8. ALLEGRA [Concomitant]
  9. WELLBUTRIN [Concomitant]

REACTIONS (30)
  - AGGRESSION [None]
  - BACK PAIN [None]
  - BRONCHITIS [None]
  - CONSTIPATION [None]
  - CULTURE URINE POSITIVE [None]
  - DERMATITIS ALLERGIC [None]
  - DERMATITIS ATOPIC [None]
  - DIABETES MELLITUS MALNUTRITION-RELATED [None]
  - DIZZINESS [None]
  - ERECTILE DYSFUNCTION [None]
  - ESCHERICHIA INFECTION [None]
  - FEAR [None]
  - FEELING COLD [None]
  - HAEMORRHOIDAL HAEMORRHAGE [None]
  - HEADACHE [None]
  - HOT FLUSH [None]
  - HYPERTENSION [None]
  - INSOMNIA [None]
  - LIBIDO DECREASED [None]
  - LIPIDS INCREASED [None]
  - LOBAR PNEUMONIA [None]
  - NASOPHARYNGITIS [None]
  - NAUSEA [None]
  - OBESITY [None]
  - PLEURISY [None]
  - POST-TRAUMATIC STRESS DISORDER [None]
  - SEPSIS [None]
  - SNEEZING [None]
  - URINARY TRACT INFECTION [None]
  - WEIGHT INCREASED [None]
